FAERS Safety Report 7963735-X (Version None)
Quarter: 2011Q4

REPORT INFORMATION
  Report Type: 
  Country: None (occurrence: None)
  Receive Date: 20111208
  Receipt Date: 20111125
  Transmission Date: 20120403
  Serious: Yes (Life-Threatening, Hospitalization, Other)
  Sender: FDA-Public Use
  Company Number: GB-JNJFOC-20110701562

PATIENT
  Sex: Male
  Weight: 37.5 kg

DRUGS (1)
  1. REMICADE [Suspect]
     Indication: CROHN'S DISEASE
     Route: 042
     Dates: start: 20110203, end: 20110913

REACTIONS (7)
  - INTESTINAL OBSTRUCTION [None]
  - RESPIRATORY FAILURE [None]
  - NASOGASTRIC OUTPUT HIGH [None]
  - ILEAL STENOSIS [None]
  - ABDOMINAL COMPARTMENT SYNDROME [None]
  - SHOCK [None]
  - ASCITES [None]
